FAERS Safety Report 7064718-7 (Version None)
Quarter: 2010Q4

REPORT INFORMATION
  Report Type: 
  Country: None (occurrence: None)
  Receive Date: 20101027
  Receipt Date: 19961028
  Transmission Date: 20110411
  Serious: Yes (Congenital Anomaly)
  Sender: FDA-Public Use
  Company Number: DE-ROCHE-57420

PATIENT

DRUGS (1)
  1. LARIAM [Suspect]
     Indication: MALARIA PROPHYLAXIS
     Route: 064
     Dates: start: 19951022, end: 19951218

REACTIONS (3)
  - CONGENITAL HIP DEFORMITY [None]
  - IMMINENT ABORTION [None]
  - JAUNDICE NEONATAL [None]
